FAERS Safety Report 4277109-9 (Version None)
Quarter: 2004Q1

REPORT INFORMATION
  Report Type: 
  Country: None (occurrence: None)
  Receive Date: 20040120
  Receipt Date: 20040120
  Transmission Date: 20041129
  Serious: No
  Sender: FDA-Public Use
  Company Number: None

PATIENT
  Age: 80 Year
  Sex: Male
  Weight: 62.3 kg

DRUGS (1)
  1. HEPARIN [Suspect]
     Indication: DEEP VENOUS THROMBOSIS PROPHYLAXIS
     Dosage: 5000 UNITS Q 12 H SUBCUTANEOUSLY
     Route: 058
     Dates: start: 20031230, end: 20031231

REACTIONS (1)
  - GASTROINTESTINAL HAEMORRHAGE [None]
